FAERS Safety Report 9840571 (Version 2)
Quarter: 2014Q1

REPORT INFORMATION
  Report Type: Report from Study
  Country: CA (occurrence: CA)
  Receive Date: 20140124
  Receipt Date: 20140204
  Transmission Date: 20141002
  Serious: Yes (Other)
  Sender: FDA-Public Use
  Company Number: CA-ROCHE-1334376

PATIENT
  Age: 51 Year
  Sex: Female

DRUGS (11)
  1. ACTEMRA [Suspect]
     Indication: RHEUMATOID ARTHRITIS
     Route: 042
     Dates: start: 20130918
  2. IMURAN [Suspect]
     Indication: PRODUCT USED FOR UNKNOWN INDICATION
     Route: 065
  3. PREDNISONE [Concomitant]
     Route: 065
  4. BISOPROLOL [Concomitant]
     Route: 065
  5. PANTOLOC [Concomitant]
     Route: 065
  6. KEPPRA [Concomitant]
     Route: 065
  7. ALENDRONATE [Concomitant]
     Route: 065
  8. PAXIL [Concomitant]
     Route: 065
  9. TYLENOL #3 (CANADA) [Concomitant]
     Route: 065
  10. VITAMIN B12 [Concomitant]
     Route: 065
  11. PLAQUENIL [Concomitant]
     Route: 065

REACTIONS (3)
  - Vertigo [Not Recovered/Not Resolved]
  - White blood cell count decreased [Recovered/Resolved]
  - Viral infection [Recovered/Resolved]
